FAERS Safety Report 4667254-8 (Version None)
Quarter: 2005Q2

REPORT INFORMATION
  Report Type: 
  Country: None (occurrence: None)
  Receive Date: 20050520
  Receipt Date: 20040826
  Transmission Date: 20051028
  Serious: Yes (Other)
  Sender: FDA-Public Use
  Company Number: PHEH2004US09276

PATIENT
  Age: 74 Year
  Sex: Female

DRUGS (3)
  1. ZOMETA [Suspect]
     Dosage: 4 MG, QMO
     Dates: start: 20031212, end: 20040526
  2. DECADRON [Concomitant]
     Dosage: 10 MG, UNK
     Dates: start: 20040225, end: 20040526
  3. DECADRON [Concomitant]
     Dosage: 4 MG, UNK
     Dates: start: 20031118, end: 20031219

REACTIONS (2)
  - OSTEONECROSIS [None]
  - TOOTH EXTRACTION [None]
